FAERS Safety Report 6141911-9 (Version None)
Quarter: 2009Q2

REPORT INFORMATION
  Report Type: 
  Country: None (occurrence: None)
  Receive Date: 20090402
  Receipt Date: 20090325
  Transmission Date: 20091009
  Serious: Yes (Other)
  Sender: FDA-Public Use
  Company Number: FR-ALLERGAN-0901948US

PATIENT
  Sex: Female

DRUGS (1)
  1. GANFORT [Suspect]
     Indication: GLAUCOMA

REACTIONS (1)
  - INTRAOCULAR PRESSURE INCREASED [None]
